FAERS Safety Report 8351156-X (Version None)
Quarter: 2012Q2

REPORT INFORMATION
  Report Type: 
  Country: None (occurrence: None)
  Receive Date: 20120510
  Receipt Date: 20120507
  Transmission Date: 20120825
  Serious: No
  Sender: FDA-Public Use
  Company Number: US-PFIZER INC-2012093780

PATIENT
  Sex: Female
  Weight: 56.236 kg

DRUGS (5)
  1. NORVASC [Suspect]
     Indication: HYPERTENSION
     Dosage: 10 MG, DAILY
     Route: 048
  2. RECLAST [Suspect]
     Indication: OSTEOPOROSIS
     Dosage: UNK, YEARLY
     Route: 042
     Dates: start: 20081001, end: 20091001
  3. ZOLOFT [Suspect]
     Indication: DEPRESSION
     Dosage: DAILY
     Route: 048
  4. XANAX [Suspect]
     Indication: PANIC ATTACK
  5. XANAX [Suspect]
     Indication: ANXIETY
     Dosage: 2X/DAY
     Route: 048
     Dates: start: 20110101

REACTIONS (9)
  - EMOTIONAL DISORDER [None]
  - MALAISE [None]
  - HYPERTENSION [None]
  - BACK PAIN [None]
  - SPINAL PAIN [None]
  - CONFUSIONAL STATE [None]
  - DRUG INEFFECTIVE [None]
  - TREMOR [None]
  - PANIC ATTACK [None]
